FAERS Safety Report 9235764 (Version 1)
Quarter: 2013Q2

REPORT INFORMATION
  Report Type: Spontaneous
  Country: US (occurrence: US)
  Receive Date: 20130417
  Receipt Date: 20130417
  Transmission Date: 20140414
  Serious: Yes (Death)
  Sender: FDA-Public Use
  Company Number: US-TEVA-398339USA

PATIENT
  Age: 84 Year
  Sex: Male

DRUGS (6)
  1. ACTIQ [Suspect]
     Indication: BREAKTHROUGH PAIN
     Dosage: DAILY
     Route: 048
  2. BACLOFEN [Concomitant]
     Indication: HICCUPS
     Dosage: 30 MILLIGRAM DAILY; PRN
  3. BENTYL [Concomitant]
     Route: 048
  4. FENTANYL [Concomitant]
     Indication: PAIN
     Route: 062
  5. LEVSIN [Concomitant]
     Indication: ABDOMINAL PAIN UPPER
     Dosage: .5 MICROGRAM DAILY; PRN
     Route: 048
  6. MEGESTEROL [Concomitant]
     Indication: APPETITE DISORDER
     Dosage: 80 MILLIGRAM DAILY; BID
     Route: 048

REACTIONS (1)
  - Colon cancer [Fatal]
